FAERS Safety Report 13360320 (Version 1)
Quarter: 2017Q1

REPORT INFORMATION
  Report Type: Spontaneous
  Country: US (occurrence: US)
  Receive Date: 20170322
  Receipt Date: 20170322
  Transmission Date: 20170429
  Serious: No
  Sender: FDA-Public Use
  Company Number: US-009507513-1703USA009897

PATIENT
  Age: 83 Year
  Sex: Female

DRUGS (1)
  1. PRINIVIL [Suspect]
     Active Substance: LISINOPRIL

REACTIONS (2)
  - Drug hypersensitivity [Unknown]
  - Chest discomfort [Unknown]

NARRATIVE: CASE EVENT DATE: 20120913
